FAERS Safety Report 16904418 (Version 1)
Quarter: 2019Q4

REPORT INFORMATION
  Report Type: Spontaneous
  Country: US (occurrence: US)
  Receive Date: 20191010
  Receipt Date: 20191010
  Transmission Date: 20200122
  Serious: Yes (Other)
  Sender: FDA-Public Use
  Company Number: US-ELI_LILLY_AND_COMPANY-US201910000411

PATIENT
  Sex: Male

DRUGS (9)
  1. BENTYL [Concomitant]
     Active Substance: DICYCLOMINE HYDROCHLORIDE
     Indication: IRRITABLE BOWEL SYNDROME
     Dosage: UNK, UNKNOWN
     Route: 065
     Dates: start: 20140120
  2. LISINOPRIL. [Concomitant]
     Active Substance: LISINOPRIL
     Indication: HYPERTENSION
     Dosage: 20 MG, UNKNOWN
     Route: 065
     Dates: start: 20141014
  3. TAMSULOSIN [Concomitant]
     Active Substance: TAMSULOSIN
     Indication: BENIGN PROSTATIC HYPERPLASIA
     Dosage: 0.4 MG, DAILY
     Route: 065
     Dates: start: 20140120
  4. TAMSULOSIN [Concomitant]
     Active Substance: TAMSULOSIN
     Indication: PROSTATOMEGALY
  5. CIALIS [Suspect]
     Active Substance: TADALAFIL
     Indication: ERECTILE DYSFUNCTION
     Dosage: 20 MG, 2/W
     Route: 065
     Dates: start: 20050510, end: 20050510
  6. VIAGRA [Suspect]
     Active Substance: SILDENAFIL CITRATE
     Indication: ERECTILE DYSFUNCTION
     Dosage: 100 MG, 2/W
     Route: 065
     Dates: start: 20020220, end: 20050406
  7. TRAZODONE [Concomitant]
     Active Substance: TRAZODONE HYDROCHLORIDE
     Indication: DEPRESSION
     Dosage: 50 MG, UNKNOWN
     Route: 065
     Dates: start: 20140110
  8. NIFEDIPINE. [Concomitant]
     Active Substance: NIFEDIPINE
     Indication: HYPERTENSION
     Dosage: 30 MG, UNKNOWN
     Route: 065
     Dates: start: 20140204
  9. VIAGRA [Suspect]
     Active Substance: SILDENAFIL CITRATE
     Dosage: 100 MG, 2/W
     Route: 065
     Dates: start: 20050706, end: 20150102

REACTIONS (1)
  - Malignant melanoma stage III [Unknown]

NARRATIVE: CASE EVENT DATE: 20050326
